FAERS Safety Report 6531023-4 (Version None)
Quarter: 2010Q1

REPORT INFORMATION
  Report Type: 
  Country: None (occurrence: None)
  Receive Date: 20100108
  Receipt Date: 20090922
  Transmission Date: 20100710
  Serious: No
  Sender: FDA-Public Use
  Company Number: A0808461A

PATIENT
  Age: 63 Year
  Sex: Male

DRUGS (1)
  1. LOVAZA [Suspect]
     Dosage: 2CAP PER DAY
     Route: 048
     Dates: start: 20090601, end: 20090915

REACTIONS (4)
  - DYSPNOEA [None]
  - PHARYNGEAL ERYTHEMA [None]
  - PHARYNGEAL INFLAMMATION [None]
  - THROAT IRRITATION [None]
